FAERS Safety Report 7600966-2 (Version None)
Quarter: 2011Q2

REPORT INFORMATION
  Report Type: 
  Country: None (occurrence: None)
  Receive Date: 20110629
  Receipt Date: 20100929
  Transmission Date: 20111010
  Serious: Yes (Hospitalization)
  Sender: FDA-Public Use
  Company Number: 10-ADE-SE-0056-ACT

PATIENT
  Sex: Female
  Weight: 55.7924 kg

DRUGS (1)
  1. H P ACTHAR [Suspect]
     Indication: MULTIPLE SCLEROSIS
     Dates: start: 20100801

REACTIONS (2)
  - FLUID RETENTION [None]
  - OEDEMA [None]
